FAERS Safety Report 16305131 (Version 1)
Quarter: 2019Q2

REPORT INFORMATION
  Report Type: Report from Study
  Country: CA (occurrence: CA)
  Receive Date: 20190513
  Receipt Date: 20190513
  Transmission Date: 20190711
  Serious: Yes (Other)
  Sender: FDA-Public Use
  Company Number: CA-JNJFOC-20180330426

PATIENT
  Age: 48 Year
  Sex: Male

DRUGS (1)
  1. STELARA [Suspect]
     Active Substance: USTEKINUMAB
     Indication: PSORIASIS
     Dosage: STRENGTH = 90 MG
     Route: 058
     Dates: start: 20111125

REACTIONS (4)
  - Sports injury [Unknown]
  - Injection site pain [Recovered/Resolved]
  - Haematoma [Unknown]
  - Infected seroma [Unknown]

NARRATIVE: CASE EVENT DATE: 20180312
